FAERS Safety Report 24786808 (Version 1)
Quarter: 2024Q4

REPORT INFORMATION
  Report Type: Spontaneous
  Country: US (occurrence: US)
  Receive Date: 20241230
  Receipt Date: 20241230
  Transmission Date: 20250114
  Serious: No
  Sender: CELLTRION
  Company Number: US-CELLTRION INC.-2024US012540

PATIENT

DRUGS (21)
  1. TRUXIMA [Suspect]
     Active Substance: RITUXIMAB-ABBS
     Indication: Immunodeficiency common variable
     Dosage: 375 MG/M2, EVERY WEEK FOR 4 DOSES (REPEAT EVERY 6 MONTHS FOR TWO YEARS)
     Route: 042
  2. ALVESCO [Suspect]
     Active Substance: CICLESONIDE
  3. AZATHIOPRINE [Concomitant]
     Active Substance: AZATHIOPRINE
  4. AZELASTINE [Concomitant]
     Active Substance: AZELASTINE
  5. VITAMIN D3 [Concomitant]
     Active Substance: CHOLECALCIFEROL
  6. EUCRISA [Concomitant]
     Active Substance: CRISABOROLE
  7. EPIPEN [Concomitant]
     Active Substance: EPINEPHRINE
  8. ERYTHROMYCIN [Concomitant]
     Active Substance: ERYTHROMYCIN
  9. PEPCID [Concomitant]
     Active Substance: FAMOTIDINE
  10. FOLTRIN [Concomitant]
  11. ALLEGRA [Concomitant]
     Active Substance: FEXOFENADINE HYDROCHLORIDE
  12. PROZAC [Concomitant]
     Active Substance: FLUOXETINE HYDROCHLORIDE
  13. HYDROCORTISONE [Concomitant]
     Active Substance: HYDROCORTISONE
  14. HIZENTRA [Concomitant]
     Active Substance: HUMAN IMMUNOGLOBULIN G
  15. ATROVENT [Concomitant]
     Active Substance: IPRATROPIUM BROMIDE
  16. ATIVAN [Concomitant]
     Active Substance: LORAZEPAM
  17. LOSARTAN [Concomitant]
     Active Substance: LOSARTAN
  18. SINGULAIR [Concomitant]
     Active Substance: MONTELUKAST SODIUM
  19. VITAMINS NOS [Concomitant]
     Active Substance: VITAMINS
  20. NAPHAZOLINE HYDROCHLORIDE [Concomitant]
     Active Substance: NAPHAZOLINE HYDROCHLORIDE
  21. PANTOPRAZOLE [Concomitant]
     Active Substance: PANTOPRAZOLE

REACTIONS (1)
  - Off label use [Unknown]
